FAERS Safety Report 7574612-0 (Version None)
Quarter: 2011Q2

REPORT INFORMATION
  Report Type: 
  Country: None (occurrence: None)
  Receive Date: 20110627
  Receipt Date: 20110614
  Transmission Date: 20111010
  Serious: Yes (Other)
  Sender: FDA-Public Use
  Company Number: CA-JNJFOC-20110607802

PATIENT
  Sex: Male
  Weight: 100 kg

DRUGS (2)
  1. REMICADE [Suspect]
     Indication: COLITIS ULCERATIVE
     Route: 042
     Dates: start: 20101223
  2. IMURAN [Concomitant]
     Dosage: 4 DAILY
     Route: 065

REACTIONS (3)
  - ODYNOPHAGIA [None]
  - FLUID INTAKE REDUCED [None]
  - OROPHARYNGEAL PAIN [None]
